FAERS Safety Report 8803823 (Version 1)
Quarter: 2012Q4

REPORT INFORMATION
  Report Type: 
  Country: JP (occurrence: JP)
  Receive Date: 20120923
  Receipt Date: 20120923
  Transmission Date: 20130627
  Serious: Yes (Hospitalization, Other)
  Sender: FDA-Public Use
  Company Number: PHHY2012JP080895

PATIENT
  Age: 59 Year
  Sex: Male

DRUGS (19)
  1. LAMISIL [Suspect]
     Route: 048
     Dates: start: 20080317, end: 20080428
  2. EUGLUCON [Suspect]
     Indication: DIABETES MELLITUS
     Route: 048
     Dates: start: 20080311, end: 20080502
  3. MIGLITOL [Suspect]
     Indication: DIABETES MELLITUS
     Route: 048
     Dates: start: 20080212, end: 20080502
  4. ZANTAC [Suspect]
     Route: 048
     Dates: start: 20080304, end: 20080428
  5. METHYCOBAL [Suspect]
     Route: 048
     Dates: start: 20080308, end: 20080428
  6. CLINORIL [Suspect]
     Indication: MUSCULOSKELETAL PAIN
     Route: 048
     Dates: start: 20080309, end: 20080502
  7. CLARITH [Suspect]
     Indication: COUGH
     Route: 048
     Dates: start: 20080407, end: 20080428
  8. ONON [Suspect]
     Indication: COUGH
     Route: 048
     Dates: start: 20080407, end: 20080428
  9. CLEANAL [Suspect]
     Indication: COUGH
     Route: 048
     Dates: start: 20080407, end: 20080428
  10. HOKUNALIN [Suspect]
     Indication: COUGH
     Route: 061
     Dates: start: 20080407, end: 20080428
  11. CODEINE PHOSPHATE [Suspect]
     Indication: COUGH
     Route: 048
     Dates: start: 20080410, end: 20080428
  12. RESPLEN [Suspect]
     Indication: COUGH
     Route: 048
     Dates: start: 20080412, end: 20080428
  13. MAGLAX [Suspect]
     Indication: CONSTIPATION
     Route: 048
     Dates: start: 20080418, end: 20080428
  14. OXYCONTIN [Suspect]
     Route: 048
     Dates: start: 20080418, end: 20080428
  15. AMARYL [Concomitant]
     Indication: DIABETES MELLITUS
     Dosage: 35 mg, UNK
     Dates: start: 20080307, end: 20080311
  16. NAVELBINE [Concomitant]
     Dates: start: 20080408, end: 20080415
  17. RANDA [Concomitant]
     Dosage: 34 mg, UNK
     Dates: start: 20080408, end: 20080415
  18. INSULIN [Concomitant]
     Indication: DIABETES MELLITUS
     Dates: end: 20080311
  19. PINORUBIN [Concomitant]
     Dosage: 35 mg, UNK

REACTIONS (21)
  - Lung carcinoma cell type unspecified stage III [Unknown]
  - Pleural effusion [Unknown]
  - Cough [Unknown]
  - Drug reaction with eosinophilia and systemic symptoms [Recovering/Resolving]
  - Toxic skin eruption [Unknown]
  - Pruritus [Unknown]
  - Rash [Unknown]
  - Erythema [Unknown]
  - Pyrexia [Unknown]
  - Skin plaque [Unknown]
  - Skin exfoliation [Unknown]
  - Infectious mononucleosis [Unknown]
  - Liver disorder [Unknown]
  - Lip oedema [Unknown]
  - Malaise [Unknown]
  - Urine output decreased [Not Recovered/Not Resolved]
  - Blood pressure decreased [Unknown]
  - Musculoskeletal pain [Unknown]
  - Musculoskeletal stiffness [Unknown]
  - Human herpes virus 6 serology positive [Unknown]
  - Dyspepsia [Unknown]
